FAERS Safety Report 4613869-2 (Version None)
Quarter: 2005Q1

REPORT INFORMATION
  Report Type: 
  Country: None (occurrence: None)
  Receive Date: 20050316
  Receipt Date: 20050308
  Transmission Date: 20050727
  Serious: Yes (Death)
  Sender: FDA-Public Use
  Company Number: FRWYE485708MAR05

PATIENT
  Age: 79 Year
  Sex: Male

DRUGS (12)
  1. TAZOCILLINE (PIPERACILLIN/TAZOBACTAM, INJECTION) [Suspect]
     Indication: PNEUMONIA
     Dosage: 4 G 3X PER 1 DAY
     Route: 042
     Dates: start: 20041226, end: 20050108
  2. TAZOCILLINE (PIPERACILLIN/TAZOBACTAM, INJECTION) [Suspect]
     Indication: STAPHYLOCOCCAL BACTERAEMIA
     Dosage: 4 G 3X PER 1 DAY
     Route: 042
     Dates: start: 20041226, end: 20050108
  3. OFLOCET (OFLOXACIN) [Suspect]
     Indication: PNEUMONIA
     Dosage: 200 MG 1X PER 3 DAY
     Route: 042
     Dates: start: 20041230, end: 20050108
  4. OFLOCET (OFLOXACIN) [Suspect]
     Indication: STAPHYLOCOCCAL BACTERAEMIA
     Dosage: 200 MG 1X PER 3 DAY
     Route: 042
     Dates: start: 20041230, end: 20050108
  5. ORBENIN CAP [Suspect]
     Indication: PNEUMONIA
     Dosage: 3 G 4X PER 1 DAY
     Route: 042
     Dates: start: 20041230, end: 20050105
  6. ORBENIN CAP [Suspect]
     Indication: STAPHYLOCOCCAL BACTERAEMIA
     Dosage: 3 G 4X PER 1 DAY
     Route: 042
     Dates: start: 20041230, end: 20050105
  7. TIENAM (CILASTATIN/IMIPENEM) [Suspect]
     Indication: PNEUMONIA
     Dosage: 1 G 4X PER 1 DAY
     Route: 042
     Dates: start: 20050102, end: 20050106
  8. TIENAM (CILASTATIN/IMIPENEM) [Suspect]
     Indication: STAPHYLOCOCCAL BACTERAEMIA
     Dosage: 1 G 4X PER 1 DAY
     Route: 042
     Dates: start: 20050102, end: 20050106
  9. TRIFLUCAN (FLUCONAZOLE) [Suspect]
     Indication: PNEUMONIA
     Dosage: 400 MG 2X PER 1 DAY
     Route: 042
     Dates: start: 20041226, end: 20050108
  10. TRIFLUCAN (FLUCONAZOLE) [Suspect]
     Indication: STAPHYLOCOCCAL BACTERAEMIA
     Dosage: 400 MG 2X PER 1 DAY
     Route: 042
     Dates: start: 20041226, end: 20050108
  11. ZYVOX [Suspect]
     Indication: PNEUMONIA
     Dosage: 600 MG 2X PER 1 DAY
     Route: 042
     Dates: start: 20050106, end: 20050117
  12. ZYVOX [Suspect]
     Indication: STAPHYLOCOCCAL BACTERAEMIA
     Dosage: 600 MG 2X PER 1 DAY
     Route: 042
     Dates: start: 20050106, end: 20050117

REACTIONS (6)
  - CARDIO-RESPIRATORY ARREST [None]
  - DISEASE RECURRENCE [None]
  - ISCHAEMIC STROKE [None]
  - PANCYTOPENIA [None]
  - PULMONARY ALVEOLAR HAEMORRHAGE [None]
  - VENTRICULAR HYPOKINESIA [None]
